FAERS Safety Report 4603379-0 (Version None)
Quarter: 2005Q1

REPORT INFORMATION
  Report Type: 
  Country: None (occurrence: None)
  Receive Date: 20050308
  Receipt Date: 20050304
  Transmission Date: 20050727
  Serious: Yes (Hospitalization, Other)
  Sender: FDA-Public Use
  Company Number: DEWYE478004MAR05

PATIENT
  Age: 49 Year
  Sex: Female

DRUGS (15)
  1. VENLAFAXINE HCL [Suspect]
     Indication: BIPOLAR DISORDER
     Dosage: SEE IMAGE
     Route: 048
     Dates: start: 20031216, end: 20040104
  2. VENLAFAXINE HCL [Suspect]
     Indication: BIPOLAR DISORDER
     Dosage: SEE IMAGE
     Route: 048
     Dates: start: 20040105
  3. ORFIRIL (VALPROATE SODIUM, , 0) [Suspect]
     Dosage: SEE IMAGE
     Route: 048
     Dates: start: 20030501, end: 20040118
  4. ORFIRIL (VALPROATE SODIUM, , 0) [Suspect]
     Dosage: SEE IMAGE
     Route: 048
     Dates: start: 20040119, end: 20040121
  5. ORFIRIL (VALPROATE SODIUM, , 0) [Suspect]
     Dosage: SEE IMAGE
     Route: 048
     Dates: start: 20040122, end: 20040128
  6. ORFIRIL (VALPROATE SODIUM, , 0) [Suspect]
     Dosage: SEE IMAGE
     Route: 048
     Dates: start: 20040129, end: 20040201
  7. ORFIRIL (VALPROATE SODIUM, , 0) [Suspect]
     Dosage: SEE IMAGE
     Route: 048
     Dates: start: 20040202, end: 20040203
  8. LORAZEPAM [Concomitant]
  9. LORAZEPAM [Concomitant]
  10. LORAZEPAM [Concomitant]
  11. LORAZEPAM [Concomitant]
  12. LORAZEPAM [Concomitant]
  13. LORAZEPAM [Concomitant]
  14. TRIMIPRAMINE MALEATE [Concomitant]
  15. METOPROLOL SUCCINATE [Concomitant]

REACTIONS (2)
  - DRUG INTERACTION POTENTIATION [None]
  - TINNITUS [None]
